FAERS Safety Report 24761730 (Version 4)
Quarter: 2025Q2

REPORT INFORMATION
  Report Type: Report from Study
  Country: US (occurrence: US)
  Receive Date: 20241220
  Receipt Date: 20250522
  Transmission Date: 20250717
  Serious: Yes (Hospitalization, Other)
  Sender: ABBVIE
  Company Number: US-ABBVIE-6051583

PATIENT
  Age: 52 Year
  Sex: Male

DRUGS (2)
  1. SKYRIZI [Suspect]
     Active Substance: RISANKIZUMAB-RZAA
     Indication: Crohn^s disease
     Dates: start: 20221208
  2. SKYRIZI [Suspect]
     Active Substance: RISANKIZUMAB-RZAA
     Indication: Crohn^s disease
     Route: 058
     Dates: start: 20221208

REACTIONS (12)
  - Ankle operation [Unknown]
  - Gastroenteritis [Recovering/Resolving]
  - Norovirus infection [Recovering/Resolving]
  - Hyperhidrosis [Unknown]
  - Septic shock [Unknown]
  - Thrombosis [Not Recovered/Not Resolved]
  - Hypoaesthesia [Unknown]
  - Procedural pain [Unknown]
  - Feeling abnormal [Unknown]
  - Septic shock [Unknown]
  - Hypotension [Unknown]
  - Hypotension [Unknown]

NARRATIVE: CASE EVENT DATE: 20241210
